FAERS Safety Report 21926908 (Version 1)
Quarter: 2023Q1

REPORT INFORMATION
  Report Type: Spontaneous
  Country: US (occurrence: US)
  Receive Date: 20230130
  Receipt Date: 20230130
  Transmission Date: 20230418
  Serious: No
  Sender: FDA-Public Use
  Company Number: US-PFIZER INC-202300036698

PATIENT
  Age: 53 Year
  Sex: Male
  Weight: 92.99 kg

DRUGS (8)
  1. PRISTIQ EXTENDED-RELEASE [Suspect]
     Active Substance: DESVENLAFAXINE SUCCINATE
     Indication: Obsessive-compulsive disorder
     Dosage: TAKE 3 OF THE 50 MILLIGRAMS EVERYDAY
  2. PRISTIQ EXTENDED-RELEASE [Suspect]
     Active Substance: DESVENLAFAXINE SUCCINATE
     Indication: Major depression
  3. TYSABRI [Concomitant]
     Active Substance: NATALIZUMAB
     Dosage: UNK
  4. LEVOTHYROXINE SODIUM [Concomitant]
     Active Substance: LEVOTHYROXINE SODIUM
     Dosage: UNK
  5. ROSUVASTATIN [Concomitant]
     Active Substance: ROSUVASTATIN
     Dosage: UNK
  6. LASIX [Concomitant]
     Active Substance: FUROSEMIDE
     Dosage: UNK
  7. POTASSIUM [Concomitant]
     Active Substance: POTASSIUM
     Dosage: UNK
  8. TOPIRAMATE [Concomitant]
     Active Substance: TOPIRAMATE
     Dosage: UNK

REACTIONS (5)
  - Confusional state [Unknown]
  - Dizziness [Unknown]
  - Feeling abnormal [Unknown]
  - Headache [Unknown]
  - Feeling abnormal [Unknown]
